FAERS Safety Report 6897776-0 (Version None)
Quarter: 2010Q3

REPORT INFORMATION
  Report Type: 
  Country: None (occurrence: None)
  Receive Date: 20100802
  Receipt Date: 20070818
  Transmission Date: 20110219
  Serious: No
  Sender: FDA-Public Use
  Company Number: US-PFIZER INC-2007059022

PATIENT
  Sex: Male
  Weight: 120.9 kg

DRUGS (2)
  1. LYRICA [Suspect]
     Indication: PAIN
     Dates: start: 20051101
  2. NORCO [Concomitant]

REACTIONS (1)
  - DRUG SCREEN FALSE POSITIVE [None]
